FAERS Safety Report 5628687-6 (Version None)
Quarter: 2008Q1

REPORT INFORMATION
  Report Type: 
  Country: None (occurrence: None)
  Receive Date: 20080215
  Receipt Date: 20080215
  Transmission Date: 20080703
  Serious: Yes (Other)
  Sender: FDA-Public Use
  Company Number: None

PATIENT
  Age: 65 Year
  Sex: Female
  Weight: 90.7194 kg

DRUGS (1)
  1. VICKS INHALER-LEVMETAMFE NA PROCTOR + GAMBLE [Suspect]
     Indication: NASAL CONGESTION
     Dosage: ONCE
     Dates: start: 20080211, end: 20080211

REACTIONS (4)
  - CAUSTIC INJURY [None]
  - EPISTAXIS [None]
  - PHARYNGOLARYNGEAL PAIN [None]
  - RHINALGIA [None]
